FAERS Safety Report 7346713-3 (Version None)
Quarter: 2011Q1

REPORT INFORMATION
  Report Type: 
  Country: None (occurrence: None)
  Receive Date: 20110302
  Receipt Date: 20110223
  Transmission Date: 20110831
  Serious: Yes (Death, Hospitalization)
  Sender: FDA-Public Use
  Company Number: 023950

PATIENT
  Sex: Male

DRUGS (11)
  1. VALSARTAN [Concomitant]
  2. ASPIRIN [Concomitant]
  3. BISOPROLOL FUMARATE [Concomitant]
  4. ROTIGOTINE (ROTIGOTINE) [Suspect]
     Indication: PARKINSON'S DISEASE
     Dosage: (2 MG - 16 MG TRANSDERMAL) (16 MG, MAINTENANCE DOSE TRANSDERMAL) (14 MG TRANSDERMAL)
     Route: 062
     Dates: start: 20101209, end: 20101210
  5. ROTIGOTINE (ROTIGOTINE) [Suspect]
     Indication: PARKINSON'S DISEASE
     Dosage: (2 MG - 16 MG TRANSDERMAL) (16 MG, MAINTENANCE DOSE TRANSDERMAL) (14 MG TRANSDERMAL)
     Route: 062
     Dates: start: 20100506, end: 20101208
  6. ROTIGOTINE (ROTIGOTINE) [Suspect]
     Indication: PARKINSON'S DISEASE
     Dosage: (2 MG - 16 MG TRANSDERMAL) (16 MG, MAINTENANCE DOSE TRANSDERMAL) (14 MG TRANSDERMAL)
     Route: 062
     Dates: start: 20100309, end: 20100505
  7. SELEGILINE HYDROCHLORIDE [Concomitant]
  8. ALLOPURINOL [Concomitant]
  9. ENTACAPONE [Concomitant]
  10. ATORVASTATIN CALCIUM [Concomitant]
  11. BENSERAZIDE HYDROCHLORIDE W/ LEVODOPA [Concomitant]

REACTIONS (7)
  - PARANOIA [None]
  - DELIRIUM [None]
  - AGGRESSION [None]
  - HALLUCINATIONS, MIXED [None]
  - RESTLESSNESS [None]
  - MYOCARDIAL INFARCTION [None]
  - DELUSION [None]
